FAERS Safety Report 17560289 (Version 1)
Quarter: 2020Q1

REPORT INFORMATION
  Report Type: Spontaneous
  Country: US (occurrence: US)
  Receive Date: 20200318
  Receipt Date: 20200318
  Transmission Date: 20200409
  Serious: No
  Sender: FDA-Public Use
  Company Number: None

PATIENT
  Age: 49 Year
  Sex: Male
  Weight: 76 kg

DRUGS (7)
  1. ALPRAZOLAM PRN [Concomitant]
  2. ACYCLOVIR PRN [Concomitant]
  3. ZOLPIDEM PRN [Concomitant]
  4. ALBUTEROL PRN [Concomitant]
  5. DESCOVY [Suspect]
     Active Substance: EMTRICITABINE\TENOFOVIR ALAFENAMIDE FUMARATE
     Indication: PROPHYLAXIS AGAINST HIV INFECTION
     Route: 048
  6. QVAR PRN [Concomitant]
  7. GABAPENTIN PRN [Concomitant]

REACTIONS (6)
  - Tenderness [None]
  - Testicular pain [None]
  - Insomnia [None]
  - Hypopnoea [None]
  - Product substitution issue [None]
  - Restlessness [None]

NARRATIVE: CASE EVENT DATE: 20191201
